FAERS Safety Report 5448606-5 (Version None)
Quarter: 2007Q3

REPORT INFORMATION
  Report Type: 
  Country: None (occurrence: None)
  Receive Date: 20070911
  Receipt Date: 20070831
  Transmission Date: 20080115
  Serious: Yes (Hospitalization)
  Sender: FDA-Public Use
  Company Number: US-AMGEN-STX241521

PATIENT
  Sex: Female

DRUGS (3)
  1. ENBREL [Suspect]
     Indication: RHEUMATOID ARTHRITIS
     Route: 058
     Dates: start: 20070802
  2. METHOTREXATE [Concomitant]
     Route: 048
     Dates: start: 19920101
  3. PLAQUENIL [Concomitant]
     Route: 048
     Dates: start: 19920101

REACTIONS (1)
  - SPINAL CORD COMPRESSION [None]
